FAERS Safety Report 8467239 (Version 5)
Quarter: 2013Q3

REPORT INFORMATION
  Report Type: Report from Study
  Country: JP (occurrence: JP)
  Receive Date: 20120319
  Receipt Date: 20130826
  Transmission Date: 20140515
  Serious: Yes (Hospitalization, Other)
  Sender: FDA-Public Use
  Company Number: JP-VERTEX PHARMACEUTICALS INC.-AE-2012-003362

PATIENT
  Age: 58 Year
  Sex: Female

DRUGS (23)
  1. VX-950 (TELAPREVIR) [Suspect]
     Indication: CHRONIC HEPATITIS C
     Dosage: 2250 MG, QD
     Route: 048
     Dates: start: 20120301, end: 20120305
  2. REBETOL [Suspect]
     Indication: CHRONIC HEPATITIS C
     Dosage: 400 MG, QD
     Route: 048
     Dates: start: 20120301, end: 20120305
  3. PEGINTRON [Suspect]
     Indication: CHRONIC HEPATITIS C
     Dosage: 1.5 ?G/KG, QW
     Route: 058
     Dates: start: 20120301, end: 20120305
  4. GASTER D [Concomitant]
     Dosage: 40 MG, QD
     Route: 048
  5. THYRADIN S [Concomitant]
     Dosage: 25 ?G, QD
     Route: 048
  6. DIOVAN [Concomitant]
     Dosage: 160 MG, QD
     Route: 048
  7. BIO-THREE [Concomitant]
     Dosage: 3 DF, QD
     Route: 048
  8. FERROMIA [Concomitant]
     Dosage: 50 MG, UNK
     Route: 048
  9. FOIPAN [Concomitant]
     Dosage: 300 MG, QD
     Route: 048
  10. MYSLEE [Concomitant]
     Dosage: 10 MG, QD
     Route: 048
  11. MUCOSTA [Concomitant]
     Dosage: 300 MG, QD
     Route: 048
  12. MEDICON [Concomitant]
     Dosage: 45 MG, UNK
     Route: 048
  13. METHYCOBAL [Concomitant]
     Dosage: 1500 ?G, QD
     Route: 048
  14. ROZAGOOD [Concomitant]
     Dosage: 150 DF, UNK
     Route: 048
  15. THEOLONG [Concomitant]
     Dosage: 100 MG, QD
     Route: 048
     Dates: end: 20120318
  16. MAGMITT [Concomitant]
     Dosage: 990 MG, QD
     Route: 048
     Dates: end: 20120318
  17. ZYLORIC [Concomitant]
     Dosage: 300 MG, QD
     Route: 048
     Dates: start: 20120301, end: 20120305
  18. ZYLORIC [Concomitant]
     Dosage: 100 MG, QD
     Route: 048
     Dates: start: 20120306, end: 20120312
  19. ZYLORIC [Concomitant]
     Dosage: 200 MG, QD
     Route: 048
     Dates: start: 20120313, end: 20120319
  20. ZYLORIC [Concomitant]
     Dosage: 100 MG, QD
     Route: 048
     Dates: start: 20120319
  21. TAKEPRON [Concomitant]
     Dosage: 15 MG, UNK
     Route: 048
     Dates: start: 20120306, end: 20120312
  22. THEODUR [Concomitant]
     Dosage: 200 MG, QD
     Route: 048
     Dates: start: 20120306
  23. ALLELOCK [Concomitant]
     Dosage: 10 MG, UNK
     Route: 048

REACTIONS (6)
  - Blood urea increased [Recovered/Resolved]
  - C-reactive protein increased [Recovered/Resolved]
  - Pyrexia [Recovered/Resolved]
  - Malaise [Recovered/Resolved]
  - Blood creatinine increased [Recovered/Resolved]
  - Vomiting [Recovered/Resolved]
